FAERS Safety Report 9324955 (Version 3)
Quarter: 2013Q3

REPORT INFORMATION
  Report Type: Report from Study
  Country: HU (occurrence: HU)
  Receive Date: 20130603
  Receipt Date: 20130925
  Transmission Date: 20140515
  Serious: Yes (Hospitalization)
  Sender: FDA-Public Use
  Company Number: HU-PFIZER INC-2012316765

PATIENT
  Age: 57 Year
  Sex: Female
  Weight: 95 kg

DRUGS (3)
  1. TOFACITINIB CITRATE [Suspect]
     Indication: PSORIASIS
     Dosage: PLACEBO UNTIL WEEK 16
     Route: 048
     Dates: start: 20120229
  2. TOFACITINIB CITRATE [Suspect]
     Dosage: 10 MG, 2X/DAY
     Route: 048
     Dates: end: 20121204
  3. ZOCOR [Concomitant]
     Dosage: 40 MG, UNK
     Dates: start: 20121017

REACTIONS (1)
  - Small intestine carcinoma [Not Recovered/Not Resolved]
